FAERS Safety Report 18008047 (Version 2)
Quarter: 2020Q3

REPORT INFORMATION
  Report Type: Spontaneous
  Country: JP (occurrence: JP)
  Receive Date: 20200710
  Receipt Date: 20200820
  Transmission Date: 20201103
  Serious: Yes (Other)
  Sender: FDA-Public Use
  Company Number: JP-MYLANLABS-2020M1061659

PATIENT
  Age: 46 Year
  Sex: Male
  Weight: 56.8 kg

DRUGS (1)
  1. ERYTHROCIN [Suspect]
     Active Substance: ERYTHROMYCIN LACTOBIONATE
     Indication: PNEUMONIA
     Dosage: 500 MILLIGRAM, TID
     Route: 041
     Dates: start: 20200415, end: 20200420

REACTIONS (1)
  - Vascular pain [Recovered/Resolved]

NARRATIVE: CASE EVENT DATE: 20200420
